FAERS Safety Report 23048751 (Version 1)
Quarter: 2023Q4

REPORT INFORMATION
  Report Type: Other
  Country: HR (occurrence: HR)
  Receive Date: 20231010
  Receipt Date: 20231010
  Transmission Date: 20240110
  Serious: Yes (Death, Hospitalization)
  Sender: FDA-Public Use
  Company Number: HR-Bion-012191

PATIENT
  Age: 61 Year

DRUGS (3)
  1. DEXAMETHASONE [Suspect]
     Active Substance: DEXAMETHASONE
     Indication: Haemophagocytic lymphohistiocytosis
     Route: 042
  2. IMMUNOGLOBULIN [Concomitant]
     Indication: Haemophagocytic lymphohistiocytosis
     Dosage: 2G/KG
     Route: 042
  3. DEXAMETHASONE [Suspect]
     Active Substance: DEXAMETHASONE
     Indication: Haemophagocytic lymphohistiocytosis
     Route: 042

REACTIONS (1)
  - Drug ineffective for unapproved indication [Fatal]
